FAERS Safety Report 9224430 (Version 1)
Quarter: 2013Q1

REPORT INFORMATION
  Report Type: Spontaneous
  Country: US (occurrence: None)
  Receive Date: 20120917
  Receipt Date: 20120917
  Transmission Date: 20140127
  Serious: Yes (Hospitalization)
  Sender: FDA-Public Use
  Company Number: 2012SP018355

PATIENT
  Age: 22 Year
  Sex: Female
  Weight: 104.33 kg

DRUGS (1)
  1. IMPLANON [Suspect]
     Indication: CONTRACEPTION
     Dosage: 1 DF; SBDE
     Dates: start: 20080627

REACTIONS (4)
  - Abdominal pain upper [None]
  - Pregnancy test false positive [None]
  - Incorrect drug administration duration [None]
  - Amenorrhoea [None]
